FAERS Safety Report 4269958-8 (Version None)
Quarter: 2004Q1

REPORT INFORMATION
  Report Type: 
  Country: None (occurrence: None)
  Receive Date: 20040112
  Receipt Date: 20031231
  Transmission Date: 20041129
  Serious: Yes (Death)
  Sender: FDA-Public Use
  Company Number: 03P-163-0240748-00

PATIENT
  Age: 78 Year
  Sex: Female

DRUGS (11)
  1. HUMIRA [Suspect]
     Indication: RHEUMATOID ARTHRITIS
     Dosage: 40 MG, 1 IN 2 WK, SUBCUTANEOUS
     Route: 058
     Dates: start: 20031002
  2. PREDNISONE [Concomitant]
  3. AZATHIOPRINE [Concomitant]
  4. RISEDRONATE SODIUM [Concomitant]
  5. AMLODIPINE BESYLATE [Concomitant]
  6. IRBESARTAN [Concomitant]
  7. FOLIC ACID [Concomitant]
  8. PROPACET 100 [Concomitant]
  9. METHOTREXATE [Concomitant]
  10. ELIVAL [Concomitant]
  11. RAFAMPIN [Concomitant]

REACTIONS (3)
  - BLOOD PRESSURE INCREASED [None]
  - HEART RATE INCREASED [None]
  - MYOCARDIAL INFARCTION [None]
